FAERS Safety Report 19978851 (Version 1)
Quarter: 2021Q4

REPORT INFORMATION
  Report Type: Spontaneous
  Country: CA (occurrence: CA)
  Receive Date: 20211020
  Receipt Date: 20211020
  Transmission Date: 20220303
  Serious: Yes (Life-Threatening, Disabling, Other)
  Sender: FDA-Public Use
  Company Number: CA-TAKEDA-2021TUS064467

PATIENT
  Age: 53 Year
  Sex: Female
  Weight: 64 kg

DRUGS (1)
  1. MESALAMINE [Suspect]
     Active Substance: MESALAMINE
     Indication: Colitis microscopic
     Dosage: UNK, BID
     Route: 048

REACTIONS (14)
  - Angina pectoris [Recovered/Resolved]
  - Back pain [Recovered/Resolved]
  - Bedridden [Recovered/Resolved]
  - Dyspnoea [Recovered/Resolved]
  - Gait disturbance [Recovered/Resolved]
  - Haemorrhoidal haemorrhage [Recovered/Resolved]
  - Influenza [Recovered/Resolved]
  - Migraine [Recovered/Resolved]
  - Myocardial infarction [Recovered/Resolved]
  - Pain in extremity [Recovered/Resolved]
  - Paralysis [Recovered/Resolved]
  - Pulmonary pain [Recovered/Resolved]
  - Restless legs syndrome [Recovered/Resolved]
  - Throat tightness [Recovered/Resolved]
